FAERS Safety Report 17904942 (Version 1)
Quarter: 2020Q2

REPORT INFORMATION
  Report Type: Spontaneous
  Country: US (occurrence: US)
  Receive Date: 20200617
  Receipt Date: 20200617
  Transmission Date: 20200714
  Serious: Yes (Hospitalization, Other)
  Sender: FDA-Public Use
  Company Number: US-ALLERGAN-1932605US

PATIENT
  Age: 59 Year
  Sex: Female

DRUGS (1)
  1. VIBERZI [Suspect]
     Active Substance: ELUXADOLINE
     Indication: PRODUCT USED FOR UNKNOWN INDICATION
     Dosage: UNK
     Dates: start: 201605, end: 20160519

REACTIONS (8)
  - Impaired quality of life [Unknown]
  - Pancreatitis acute [Unknown]
  - Psychological trauma [Not Recovered/Not Resolved]
  - Product design issue [Unknown]
  - Manufacturing issue [Unknown]
  - Pain [Unknown]
  - Anxiety [Not Recovered/Not Resolved]
  - Product label issue [Unknown]
